FAERS Safety Report 9519404 (Version 1)
Quarter: 2013Q1

REPORT INFORMATION
  Report Type: Spontaneous
  Country: US (occurrence: None)
  Receive Date: 20130305
  Receipt Date: 20130305
  Transmission Date: 20140127
  Serious: Yes (Other)
  Sender: FDA-Public Use
  Company Number: 163-21880-12020457

PATIENT
  Age: 57 Year
  Sex: Female

DRUGS (3)
  1. REVLIMID [Suspect]
     Indication: PLASMA CELL MYELOMA
     Dosage: 10 MG, QDX21D/28D, PO
     Route: 048
     Dates: start: 201107, end: 201112
  2. ZOMETA (ZOLEDRONIC ACID) (UNKNOWN) [Concomitant]
  3. LEVOTHROID (LEVOTHYROXINE SODIUM) (UNKNOWN) [Concomitant]

REACTIONS (4)
  - Pyrexia [None]
  - Chills [None]
  - Cough [None]
  - Plasma cell myeloma [None]
